FAERS Safety Report 4370047-2 (Version None)
Quarter: 2004Q2

REPORT INFORMATION
  Report Type: 
  Country: None (occurrence: None)
  Receive Date: 20040527
  Receipt Date: 20040519
  Transmission Date: 20050107
  Serious: Yes (Other)
  Sender: FDA-Public Use
  Company Number: 2004-05-0335

PATIENT
  Age: 11 Year

DRUGS (7)
  1. LORATADINE [Suspect]
     Indication: SEASONAL ALLERGY
     Dosage: ORAL
     Route: 048
     Dates: start: 19980501
  2. LORATADINE [Suspect]
     Indication: SEASONAL ALLERGY
     Dosage: 10 MG QD
     Dates: end: 20040510
  3. PULMICORT [Suspect]
     Indication: HYPERSENSITIVITY
     Dates: start: 19980101, end: 20021001
  4. SERETIDE (SALMETEROL XINAFOATE/FLUTICASON PROPIONAT [Suspect]
     Indication: HYPERSENSITIVITY
     Dates: start: 20021001
  5. LOMUDAL OPHTHALMIC SOLUTION [Concomitant]
  6. FLUTIDE (FLUTICASONE PROPIONATE) [Concomitant]
  7. LOMUDAL NASAL [Concomitant]

REACTIONS (1)
  - DEPRESSION [None]
